FAERS Safety Report 19277917 (Version 1)
Quarter: 2021Q2

REPORT INFORMATION
  Report Type: Spontaneous
  Country: US (occurrence: US)
  Receive Date: 20210520
  Receipt Date: 20210520
  Transmission Date: 20210717
  Serious: No
  Sender: FDA-Public Use
  Company Number: US-ALKEM LABORATORIES LIMITED-US-ALKEM-2021-00603

PATIENT
  Sex: Female

DRUGS (4)
  1. METFORMIN HYDROCHLORIDE EXTENDED RELEASE TABLETS 750 MG [Suspect]
     Active Substance: METFORMIN HYDROCHLORIDE
     Indication: BLOOD GLUCOSE ABNORMAL
     Dosage: 1000 MILLIGRAM
     Route: 048
     Dates: start: 20210118
  2. SEROQUEL [Concomitant]
     Active Substance: QUETIAPINE FUMARATE
     Indication: PRODUCT USED FOR UNKNOWN INDICATION
     Dosage: UNK
     Route: 065
  3. DOXEPINE [Concomitant]
     Active Substance: DOXEPIN
     Indication: PRODUCT USED FOR UNKNOWN INDICATION
     Dosage: UNK
     Route: 065
  4. METFORMIN HYDROCHLORIDE EXTENDED RELEASE TABLETS 750 MG [Suspect]
     Active Substance: METFORMIN HYDROCHLORIDE
     Dosage: 750 MILLIGRAM
     Route: 048
     Dates: start: 20210124

REACTIONS (4)
  - Insomnia [Unknown]
  - Nervousness [Unknown]
  - Heart rate increased [Unknown]
  - Chest discomfort [Unknown]

NARRATIVE: CASE EVENT DATE: 20210118
